FAERS Safety Report 7157481-2 (Version None)
Quarter: 2010Q4

REPORT INFORMATION
  Report Type: 
  Country: None (occurrence: None)
  Receive Date: 20101214
  Receipt Date: 20101207
  Transmission Date: 20110411
  Serious: Yes (Other)
  Sender: FDA-Public Use
  Company Number: B0689051A

PATIENT
  Age: 49 Year
  Sex: Male
  Weight: 86 kg

DRUGS (2)
  1. SELZENTRY [Suspect]
     Indication: HIV INFECTION
     Route: 048
     Dates: start: 20101111, end: 20101111
  2. ISENTRESS [Concomitant]
     Indication: HIV INFECTION
     Dosage: 400MG TWICE PER DAY
     Route: 065

REACTIONS (2)
  - PRURITUS [None]
  - SWELLING [None]
